FAERS Safety Report 7865208-1 (Version None)
Quarter: 2011Q4

REPORT INFORMATION
  Report Type: 
  Country: None (occurrence: None)
  Receive Date: 20111028
  Receipt Date: 20101101
  Transmission Date: 20120403
  Serious: No
  Sender: FDA-Public Use
  Company Number: US-GLAXOSMITHKLINE-A0889972A

PATIENT
  Age: 57 Year
  Sex: Female

DRUGS (6)
  1. CLARITIN [Concomitant]
  2. METOPROLOL TARTRATE [Concomitant]
  3. ADVAIR DISKUS 100/50 [Suspect]
     Indication: UPPER RESPIRATORY TRACT INFECTION
     Dosage: 1PUFF TWICE PER DAY
     Route: 055
     Dates: start: 20101021, end: 20101023
  4. LISINOPRIL AND HYDROCHLOROTHIAZIDE [Concomitant]
  5. ZOLOFT [Concomitant]
  6. SIMVASTATIN [Concomitant]

REACTIONS (2)
  - PALPITATIONS [None]
  - CHEST PAIN [None]
